FAERS Safety Report 9695571 (Version 1)
Quarter: 2013Q4

REPORT INFORMATION
  Report Type: Spontaneous
  Country: US (occurrence: US)
  Receive Date: 20131119
  Receipt Date: 20131119
  Transmission Date: 20140711
  Serious: Yes (Hospitalization, Other)
  Sender: FDA-Public Use
  Company Number: US-PFIZER INC-2013325975

PATIENT
  Age: 54 Year
  Sex: Male

DRUGS (3)
  1. AZITHROMYCIN [Suspect]
     Indication: INFLUENZA
     Dosage: UNK
  2. ZANAMIVIR [Suspect]
     Indication: INFLUENZA
     Dosage: UNK
  3. RIMANTADINE [Suspect]
     Indication: INFLUENZA
     Dosage: UNK

REACTIONS (1)
  - Linear IgA disease [Recovered/Resolved]
